FAERS Safety Report 19804825 (Version 1)
Quarter: 2021Q3

REPORT INFORMATION
  Report Type: Report from Study
  Country: CA (occurrence: CA)
  Receive Date: 20210908
  Receipt Date: 20210908
  Transmission Date: 20211014
  Serious: Yes (Other)
  Sender: FDA-Public Use
  Company Number: CA-JNJFOC-20210906901

PATIENT
  Age: 57 Year
  Sex: Female

DRUGS (1)
  1. REMICADE [Suspect]
     Active Substance: INFLIXIMAB
     Indication: COLITIS ULCERATIVE
     Dosage: ON 02?SEP?2021, THE PATIENT HAD RECEIVED 5TH INFLIXIMAB INFUSION AT DOSE OF 500MG
     Route: 042
     Dates: start: 20210426

REACTIONS (4)
  - Clostridium difficile infection [Unknown]
  - Haematochezia [Unknown]
  - General physical health deterioration [Unknown]
  - Frequent bowel movements [Unknown]

NARRATIVE: CASE EVENT DATE: 20210901
